FAERS Safety Report 4772227-0 (Version None)
Quarter: 2005Q3

REPORT INFORMATION
  Report Type: 
  Country: None (occurrence: None)
  Receive Date: 20050919
  Receipt Date: 20050221
  Transmission Date: 20060218
  Serious: No
  Sender: FDA-Public Use
  Company Number: US-BRISTOL-MYERS SQUIBB COMPANY-12872099

PATIENT
  Sex: Male

DRUGS (5)
  1. DEFINITY [Suspect]
  2. ATENOLOL [Concomitant]
     Route: 048
     Dates: start: 20050116
  3. ZANTAC [Concomitant]
     Route: 048
  4. ASPIRIN [Concomitant]
     Route: 048
  5. UNSPECIFIED [Concomitant]

REACTIONS (4)
  - COUGH [None]
  - PARAESTHESIA ORAL [None]
  - SWELLING FACE [None]
  - URTICARIA [None]
